FAERS Safety Report 19868996 (Version 1)
Quarter: 2021Q3

REPORT INFORMATION
  Report Type: Other
  Country: CN (occurrence: CN)
  Receive Date: 20210923
  Receipt Date: 20210923
  Transmission Date: 20211014
  Serious: Yes (Other)
  Sender: FDA-Public Use
  Company Number: CN-ROCHE-2913481

PATIENT
  Age: 50 Year
  Sex: Female

DRUGS (11)
  1. XELODA [Suspect]
     Active Substance: CAPECITABINE
     Indication: SMALL INTESTINE CARCINOMA METASTATIC
     Dosage: CAPECITABINE 1.5 PO BID D1?14 (2 CYCLE)
     Route: 048
     Dates: start: 20200428, end: 20200521
  2. OXALIPLATIN. [Suspect]
     Active Substance: OXALIPLATIN
     Indication: SMALL INTESTINE CARCINOMA METASTATIC
     Dosage: OXALIPLATIN 200 MG D1 (2 CYCLE)
     Route: 065
     Dates: start: 20200428, end: 20200521
  3. TRASTUZUMAB. [Suspect]
     Active Substance: TRASTUZUMAB
     Route: 065
     Dates: start: 20200901, end: 20200921
  4. XELODA [Suspect]
     Active Substance: CAPECITABINE
     Route: 048
     Dates: start: 20200901, end: 20200924
  5. OXALIPLATIN. [Suspect]
     Active Substance: OXALIPLATIN
     Dosage: OXALIPLATIN 200 MG D1 (3 CYCLE)
     Route: 065
     Dates: start: 20200616, end: 20200804
  6. OXALIPLATIN. [Suspect]
     Active Substance: OXALIPLATIN
     Dosage: OXALIPLATIN 200 MG D1 (2 CYCLE)
     Route: 065
     Dates: start: 202004
  7. TRASTUZUMAB. [Suspect]
     Active Substance: TRASTUZUMAB
     Indication: SMALL INTESTINE CARCINOMA METASTATIC
     Route: 065
     Dates: start: 20200616, end: 20200804
  8. TRASTUZUMAB. [Suspect]
     Active Substance: TRASTUZUMAB
     Route: 065
     Dates: start: 20200428, end: 20200521
  9. XELODA [Suspect]
     Active Substance: CAPECITABINE
     Dosage: CAPECITABINE 1.5 PO BID D1?14 (2 CYCLE)
     Route: 048
     Dates: start: 202004
  10. TRASTUZUMAB. [Suspect]
     Active Substance: TRASTUZUMAB
     Route: 065
     Dates: start: 20201119, end: 20201229
  11. XELODA [Suspect]
     Active Substance: CAPECITABINE
     Dosage: CAPECITABINE 1.5 PO BID D1?14 (3 CYCLE)
     Route: 048
     Dates: start: 20200616, end: 20200804

REACTIONS (2)
  - Myelosuppression [Unknown]
  - Gastrointestinal disorder [Unknown]
